FAERS Safety Report 4714838-4 (Version None)
Quarter: 2005Q3

REPORT INFORMATION
  Report Type: 
  Country: None (occurrence: None)
  Receive Date: 20050714
  Receipt Date: 20050714
  Transmission Date: 20060218
  Serious: Yes (Hospitalization)
  Sender: FDA-Public Use
  Company Number: None

PATIENT
  Age: 65 Year
  Sex: Male
  Weight: 55.3388 kg

DRUGS (1)
  1. LOVENOX [Suspect]
     Dosage: 50 MG Q12HOURS SUBCUTANEO
     Route: 058
     Dates: start: 20050308, end: 20050315

REACTIONS (1)
  - ABDOMINAL HAEMATOMA [None]
